FAERS Safety Report 8566767 (Version 3)
Quarter: 2012Q4

REPORT INFORMATION
  Report Type: 
  Country: US (occurrence: US)
  Receive Date: 20120517
  Receipt Date: 20121017
  Transmission Date: 20130627
  Serious: Yes (Hospitalization)
  Sender: FDA-Public Use
  Company Number: US-PFIZER INC-2012116821

PATIENT
  Sex: Female

DRUGS (1)
  1. CHAPSTICK LIP BALM [Suspect]
     Dosage: UNK

REACTIONS (5)
  - Application site hypersensitivity [Unknown]
  - Dependence [Unknown]
  - Lip dry [Unknown]
  - Discomfort [Unknown]
  - Feeling abnormal [Unknown]
